FAERS Safety Report 9808529 (Version 2)
Quarter: 2014Q1

REPORT INFORMATION
  Report Type: Spontaneous
  Country: US (occurrence: US)
  Receive Date: 20140110
  Receipt Date: 20140110
  Transmission Date: 20141002
  Serious: Yes (Other)
  Sender: FDA-Public Use
  Company Number: US-ACTAVIS-2013-20317

PATIENT
  Sex: Male
  Weight: 136 kg

DRUGS (3)
  1. FENTANYL-75 (WATSON LABORATORIES) [Suspect]
     Indication: COMPLEX REGIONAL PAIN SYNDROME
     Dosage: 1 DF, EVERY 48 HOURS
     Route: 062
  2. HYDROCODONE [Concomitant]
     Indication: PAIN
     Dosage: 7.5 MG, Q6H
     Route: 048
     Dates: start: 2005
  3. NAPROXEN [Concomitant]
     Indication: PAIN
     Dosage: UNK, BID
     Route: 048
     Dates: start: 2010

REACTIONS (4)
  - Dyskinesia [Recovered/Resolved]
  - Breakthrough pain [Unknown]
  - Incorrect drug administration duration [Unknown]
  - Drug ineffective [Not Recovered/Not Resolved]
